FAERS Safety Report 24190424 (Version 1)
Quarter: 2024Q3

REPORT INFORMATION
  Report Type: Spontaneous
  Country: RU (occurrence: RU)
  Receive Date: 20240808
  Receipt Date: 20240808
  Transmission Date: 20241016
  Serious: Yes (Other)
  Sender: VERTEX
  Company Number: None

PATIENT
  Age: 2 Year
  Sex: Female
  Weight: 11.2 kg

DRUGS (8)
  1. ORKAMBI [Suspect]
     Active Substance: IVACAFTOR\LUMACAFTOR
     Indication: Cystic fibrosis
     Dosage: 1 PACKET GRANULES (100 MG LUMACAFTOR/125 MG IVACAFTOR), BID
     Route: 048
     Dates: start: 20240704, end: 20240717
  2. PANCRELIPASE [Concomitant]
     Active Substance: PANCRELIPASE
     Indication: Pancreatic failure
     Dosage: 30 CAPSULES PER DAY, WITH FOOD
     Route: 048
     Dates: start: 20220418
  3. URSODIOL [Concomitant]
     Active Substance: URSODIOL
     Indication: Cystic fibrosis
     Dosage: 3 MG/KG PER DAY ORALLY BEFORE MEAL
     Route: 048
     Dates: start: 20220426
  4. COLISTIN [Concomitant]
     Active Substance: COLISTIN
     Indication: Respiratory tract infection
     Dosage: 80 MG (1,000,000 U), TID
     Dates: start: 20231229
  5. NEXIUM [Concomitant]
     Active Substance: ESOMEPRAZOLE MAGNESIUM
     Indication: Gastrooesophageal reflux disease
     Dosage: UNK
     Route: 048
     Dates: start: 20221128
  6. TOBRAMYCIN [Concomitant]
     Active Substance: TOBRAMYCIN\TOBRAMYCIN SULFATE
     Indication: Respiratory tract infection
     Dosage: 300 MG/4 ML, TWICE A DAY
     Dates: start: 20230205
  7. FLUIMUCIL [Concomitant]
     Active Substance: ACETYLCYSTEINE
     Indication: Sputum retention
     Dosage: 100 MG PER DAY DILUTED WITH WATER
     Route: 048
     Dates: start: 20240212
  8. VEROSPILACTONE [Concomitant]
     Indication: Diuretic therapy
     Dosage: 12.5 MG
     Route: 048
     Dates: start: 20230911

REACTIONS (4)
  - Diarrhoea [Recovered/Resolved]
  - Abnormal faeces [Recovered/Resolved]
  - Decreased appetite [Recovered/Resolved]
  - Abdominal pain [Recovered/Resolved]

NARRATIVE: CASE EVENT DATE: 20240705
